FAERS Safety Report 8934212 (Version 1)
Quarter: 2012Q4

REPORT INFORMATION
  Report Type: 
  Country: DE (occurrence: DE)
  Receive Date: 20121129
  Receipt Date: 20121129
  Transmission Date: 20130627
  Serious: Yes (Hospitalization)
  Sender: FDA-Public Use
  Company Number: DE-009507513-1211DEU009433

PATIENT
  Age: 71 Year
  Sex: Female

DRUGS (10)
  1. REMERGIL SOLTAB [Suspect]
     Dosage: 15 mg, qd
     Route: 048
     Dates: start: 20120828
  2. REMERGIL SOLTAB [Suspect]
     Dosage: 30 mg,qd
     Route: 048
     Dates: start: 20120910
  3. ARCOXIA [Concomitant]
     Dosage: 120 mg, qd
     Route: 048
  4. ASPIRIN [Concomitant]
     Dosage: 100 mg, qd
     Route: 048
  5. SIMVAHEXAL [Concomitant]
     Dosage: 20 mg, qd
     Route: 048
  6. BLOPRESS [Concomitant]
     Dosage: 24 mg, qd
     Route: 048
  7. PANTOZOL [Concomitant]
     Dosage: 20 mg, qd
     Route: 048
  8. METFORMIN [Concomitant]
     Dosage: 500 mg, qd
     Route: 048
  9. ISOPTIN [Concomitant]
     Dosage: 240 mg, qd
     Route: 048
     Dates: end: 20120828
  10. ISOPTIN [Concomitant]
     Dosage: 480 mg, qd
     Dates: start: 20120829

REACTIONS (1)
  - Restless legs syndrome [Recovered/Resolved]
